FAERS Safety Report 12455164 (Version 1)
Quarter: 2016Q2

REPORT INFORMATION
  Report Type: Spontaneous
  Country: US (occurrence: None)
  Receive Date: 20160609
  Receipt Date: 20160609
  Transmission Date: 20160815
  Serious: Yes (Other)
  Sender: FDA-Public Use
  Company Number: None

PATIENT
  Age: 77 Year
  Sex: Male

DRUGS (1)
  1. HYDRALAZINE, 25MG CAMBER [Suspect]
     Active Substance: HYDRALAZINE HYDROCHLORIDE
     Indication: HYPERTENSION
     Route: 048
     Dates: start: 20160520, end: 20160601

REACTIONS (2)
  - Cough [None]
  - Blood pressure inadequately controlled [None]

NARRATIVE: CASE EVENT DATE: 20160601
